FAERS Safety Report 8932369 (Version 2)
Quarter: 2013Q2

REPORT INFORMATION
  Report Type: Report from Study
  Country: FR (occurrence: FR)
  Receive Date: 20121128
  Receipt Date: 20130410
  Transmission Date: 20140414
  Serious: Yes (Death, Hospitalization)
  Sender: FDA-Public Use
  Company Number: PHHO2012FR016854

PATIENT
  Age: 75 Year
  Sex: Male
  Weight: 57 kg

DRUGS (8)
  1. AFINITOR [Suspect]
     Indication: METASTATIC NEOPLASM
     Dosage: 5 MG, QD
     Route: 048
     Dates: start: 20111116, end: 20120712
  2. DOLIPRANE [Concomitant]
     Dosage: UNK
     Dates: start: 20120503
  3. HYTACAND [Concomitant]
     Dosage: UNK
     Dates: start: 20120515
  4. SPASFON [Concomitant]
     Dosage: UNK
     Dates: start: 20120712
  5. TOPALGIC ^HOUDE^ [Concomitant]
     Dosage: UNK
  6. LEXOMIL [Concomitant]
     Dosage: UNK
  7. COAPROVEL [Concomitant]
     Indication: HYPERTENSION
  8. DIAMOX [Concomitant]
     Indication: GLAUCOMA

REACTIONS (1)
  - General physical health deterioration [Fatal]
